FAERS Safety Report 12057706 (Version 1)
Quarter: 2016Q1

REPORT INFORMATION
  Report Type: Report from Study
  Country: US (occurrence: US)
  Receive Date: 20160209
  Receipt Date: 20160209
  Transmission Date: 20160526
  Serious: No
  Sender: FDA-Public Use
  Company Number: US-ABBVIE-15P-163-1492352-00

PATIENT
  Age: 26 Year
  Sex: Female

DRUGS (3)
  1. HUMIRA [Suspect]
     Active Substance: ADALIMUMAB
     Route: 058
  2. HUMIRA [Suspect]
     Active Substance: ADALIMUMAB
     Indication: COLITIS ULCERATIVE
     Route: 058
     Dates: start: 20151014, end: 20151014
  3. HUMIRA [Suspect]
     Active Substance: ADALIMUMAB
     Route: 058
     Dates: start: 2015

REACTIONS (4)
  - Vision blurred [Not Recovered/Not Resolved]
  - Exposure during pregnancy [Unknown]
  - Dizziness [Recovered/Resolved]
  - Temperature intolerance [Unknown]

NARRATIVE: CASE EVENT DATE: 20151014
